FAERS Safety Report 11909373 (Version 1)
Quarter: 2016Q1

REPORT INFORMATION
  Report Type: Spontaneous
  Country: US (occurrence: US)
  Receive Date: 20160112
  Receipt Date: 20160112
  Transmission Date: 20160526
  Serious: No
  Sender: FDA-Public Use
  Company Number: US-TEVA-604833USA

PATIENT
  Sex: Female
  Weight: 74.91 kg

DRUGS (5)
  1. LEXAPRO [Concomitant]
     Active Substance: ESCITALOPRAM OXALATE
  2. VITAMIN D [Concomitant]
     Active Substance: CHOLECALCIFEROL
  3. BENZONATATE. [Concomitant]
     Active Substance: BENZONATATE
  4. ZECUITY [Suspect]
     Active Substance: SUMATRIPTAN SUCCINATE
     Indication: MIGRAINE
     Route: 062
     Dates: start: 20150924
  5. TROKENDI [Concomitant]
     Active Substance: TOPIRAMATE

REACTIONS (3)
  - Device battery issue [Unknown]
  - Application site erythema [Recovered/Resolved]
  - Application site vesicles [Unknown]
